FAERS Safety Report 18358918 (Version 1)
Quarter: 2020Q4

REPORT INFORMATION
  Report Type: Spontaneous
  Country: CN (occurrence: CN)
  Receive Date: 20201008
  Receipt Date: 20201008
  Transmission Date: 20210114
  Serious: Yes (Hospitalization)
  Sender: FDA-Public Use
  Company Number: CN-BAXTER-2020BAX020325

PATIENT
  Age: 53 Year
  Sex: Female
  Weight: 42 kg

DRUGS (8)
  1. 0.9% SODIUM CHLORIDE INJECTION [Suspect]
     Active Substance: SODIUM CHLORIDE
     Indication: MEDICATION DILUTION
     Dosage: 1ST TO 3RD CYCLE OF CHEMOTHERAPY, 0.9% SODIUM CHLORIDE + CYCLOPHOSPHAMIDE
     Route: 041
  2. 0.9% SODIUM CHLORIDE INJECTION [Suspect]
     Active Substance: SODIUM CHLORIDE
     Dosage: 4TH CYCLE OF CHEMOTHERAPY, 0.9% SODIUM CHLORIDE + CYCLOPHOSPHAMIDE 900 MG
     Route: 041
     Dates: start: 20200829, end: 20200829
  3. PIRARUBICIN HYDROCHLORIDE [Suspect]
     Active Substance: PIRARUBICIN HYDROCHLORIDE
     Indication: BREAST CANCER FEMALE
     Dosage: 1ST TO 3RD CYCLE OF CHEMOTHERAPY, PIRARUBICIN HYDROCHLORIDE + 5% GLUCOSE
     Route: 041
  4. ENDOXAN [Suspect]
     Active Substance: CYCLOPHOSPHAMIDE
     Dosage: 4TH CYCLE OF CHEMOTHERAPY, CYCLOPHOSPHAMIDE + 0,9% SODIUM CHLORIDE 100ML
     Route: 041
     Dates: start: 20200829, end: 20200829
  5. ENDOXAN [Suspect]
     Active Substance: CYCLOPHOSPHAMIDE
     Indication: BREAST CANCER FEMALE
     Dosage: 1ST TO 3RD CYCLE OF CHEMOTHERAPY, CYCLOPHOSPHAMIDE + 0,9% SODIUM CHLORIDE
     Route: 041
  6. 5% GLUCOSE  INJECTION [Suspect]
     Active Substance: DEXTROSE
     Indication: MEDICATION DILUTION
     Dosage: 1ST TO 3RD CYCLE OF CHEMOTHERAPY, 5% GLUCOSE + PIRARUBICIN HYDROCHLORIDE
     Route: 041
  7. 5% GLUCOSE  INJECTION [Suspect]
     Active Substance: DEXTROSE
     Dosage: 4TH CYCLE OF CHEMOTHERAPY, 5% GLUCOSE + PIRARUBICIN HYDROCHLORIDE 90 MG
     Route: 041
     Dates: start: 20200829, end: 20200829
  8. PIRARUBICIN HYDROCHLORIDE [Suspect]
     Active Substance: PIRARUBICIN HYDROCHLORIDE
     Dosage: 4TH CYCLE OF CHEMOTHERAPY, PIRARUBICIN HYDROCHLORIDE + 5% GLUCOSE 100 ML
     Route: 041
     Dates: start: 20200829, end: 20200829

REACTIONS (1)
  - Myelosuppression [Recovered/Resolved]

NARRATIVE: CASE EVENT DATE: 20200918
